FAERS Safety Report 5716004-2 (Version None)
Quarter: 2008Q2

REPORT INFORMATION
  Report Type: 
  Country: None (occurrence: None)
  Receive Date: 20080422
  Receipt Date: 20071106
  Transmission Date: 20081010
  Serious: Yes (Life-Threatening, Hospitalization)
  Sender: FDA-Public Use
  Company Number: APP200700328

PATIENT
  Age: 73 Year
  Sex: Female
  Weight: 68.0396 kg

DRUGS (3)
  1. HEPARIN SODIUM [Suspect]
     Indication: THROMBOSIS PROPHYLAXIS
     Dosage: 5000 USP U/ML, DWELL
     Dates: start: 20070912
  2. HEPARIN SODIUM [Suspect]
  3. HEPARIN SODIUM [Suspect]
     Indication: INDWELLING CATHETER MANAGEMENT
     Dosage: 1000 USP U/ML
     Dates: end: 20070826

REACTIONS (1)
  - THROMBOCYTOPENIA [None]
